FAERS Safety Report 7416435-9 (Version None)
Quarter: 2011Q2

REPORT INFORMATION
  Report Type: 
  Country: None (occurrence: None)
  Receive Date: 20110414
  Receipt Date: 20110406
  Transmission Date: 20111010
  Serious: Yes (Hospitalization)
  Sender: FDA-Public Use
  Company Number: GB-AMGEN-UK217136

PATIENT
  Age: 65 Year
  Sex: Male
  Weight: 120.2 kg

DRUGS (2)
  1. IRINOTECAN [Concomitant]
     Dosage: 840 MG, UNK
     Route: 042
     Dates: start: 20070313
  2. PANITUMUMAB [Suspect]
     Indication: COLORECTAL CANCER
     Dosage: 1080 MG, UNK
     Route: 042
     Dates: start: 20070313

REACTIONS (1)
  - DEHYDRATION [None]
